FAERS Safety Report 9002539 (Version 1)
Quarter: 2013Q1

REPORT INFORMATION
  Report Type: Spontaneous
  Country: US (occurrence: US)
  Receive Date: 20130107
  Receipt Date: 20130107
  Transmission Date: 20140127
  Serious: Yes (Other)
  Sender: FDA-Public Use
  Company Number: US-JNJFOC-20130100818

PATIENT
  Sex: Female

DRUGS (2)
  1. CHILDREN^S MOTRIN [Suspect]
     Route: 065
  2. CHILDREN^S MOTRIN [Suspect]
     Indication: PRODUCT USED FOR UNKNOWN INDICATION
     Route: 065

REACTIONS (3)
  - Renal disorder [Not Recovered/Not Resolved]
  - Adverse event [Unknown]
  - Product quality issue [Unknown]
